FAERS Safety Report 7658851-6 (Version None)
Quarter: 2011Q3

REPORT INFORMATION
  Report Type: 
  Country: None (occurrence: None)
  Receive Date: 20110802
  Receipt Date: 20110718
  Transmission Date: 20111222
  Serious: No
  Sender: FDA-Public Use
  Company Number: 2011P1007672

PATIENT
  Age: 43 Year
  Sex: Female
  Weight: 85.7298 kg

DRUGS (3)
  1. SOMA [Concomitant]
  2. FENTANYL CITRATE [Suspect]
     Indication: BACK PAIN
     Dosage: 1 PATCH; Q48H; TDER
     Route: 062
     Dates: start: 20110702, end: 20110714
  3. FENTANYL CITRATE [Suspect]
     Indication: NECK PAIN
     Dosage: 1 PATCH; Q48H; TDER
     Route: 062
     Dates: start: 20110702, end: 20110714

REACTIONS (12)
  - APPLICATION SITE HYPERSENSITIVITY [None]
  - CONDITION AGGRAVATED [None]
  - DEHYDRATION [None]
  - ABDOMINAL PAIN UPPER [None]
  - BACK PAIN [None]
  - HYPOPHAGIA [None]
  - HYPERHIDROSIS [None]
  - FEELING ABNORMAL [None]
  - URINE OUTPUT DECREASED [None]
  - CONSTIPATION [None]
  - BALANCE DISORDER [None]
  - VOMITING PROJECTILE [None]
